FAERS Safety Report 12142416 (Version 3)
Quarter: 2016Q1

REPORT INFORMATION
  Report Type: Report from Study
  Country: US (occurrence: US)
  Receive Date: 20160303
  Receipt Date: 20160324
  Transmission Date: 20160526
  Serious: Yes (Other)
  Sender: FDA-Public Use
  Company Number: US-GILEAD-2016-0193440

PATIENT
  Age: 55 Year
  Sex: Female
  Weight: 51.7 kg

DRUGS (8)
  1. AMBRISENTAN [Suspect]
     Active Substance: AMBRISENTAN
     Dosage: 20 MG, QD
     Route: 065
     Dates: start: 20151028
  2. REMODULIN [Suspect]
     Active Substance: TREPROSTINIL
     Indication: PULMONARY HYPERTENSION
     Dosage: 0.097 UG/KG, UNK
     Route: 042
     Dates: start: 20150409
  3. REMODULIN [Suspect]
     Active Substance: TREPROSTINIL
     Dosage: 0.099 UG/KG, UNK
     Route: 042
  4. ADCIRCA [Suspect]
     Active Substance: TADALAFIL
     Indication: PRODUCT USED FOR UNKNOWN INDICATION
     Route: 065
  5. AMBRISENTAN [Suspect]
     Active Substance: AMBRISENTAN
     Indication: PULMONARY HYPERTENSION
     Dosage: 10 MG, QD
     Route: 048
     Dates: start: 20150410
  6. AMBRISENTAN [Suspect]
     Active Substance: AMBRISENTAN
     Dosage: 5 MG, QD
     Route: 048
  7. REVATIO [Suspect]
     Active Substance: SILDENAFIL CITRATE
     Indication: PRODUCT USED FOR UNKNOWN INDICATION
     Dosage: UNK
     Route: 065
  8. REMODULIN [Suspect]
     Active Substance: TREPROSTINIL
     Dosage: 0.100 UG/KG, UNK
     Route: 042

REACTIONS (3)
  - Weight decreased [Recovered/Resolved]
  - Blood immunoglobulin E abnormal [Unknown]
  - Malaise [Unknown]

NARRATIVE: CASE EVENT DATE: 201601
